FAERS Safety Report 10926824 (Version 4)
Quarter: 2015Q2

REPORT INFORMATION
  Report Type: Spontaneous
  Country: US (occurrence: US)
  Receive Date: 20150318
  Receipt Date: 20150626
  Transmission Date: 20150821
  Serious: Yes (Hospitalization, Other)
  Sender: FDA-Public Use
  Company Number: US-009507513-1503USA008904

PATIENT
  Sex: Male
  Weight: 189.12 kg

DRUGS (2)
  1. JANUVIA [Suspect]
     Active Substance: SITAGLIPTIN PHOSPHATE
     Dosage: 50 MG, QD
     Route: 048
     Dates: start: 20090212
  2. JANUVIA [Suspect]
     Active Substance: SITAGLIPTIN PHOSPHATE
     Indication: TYPE 2 DIABETES MELLITUS
     Dosage: 100 MG, QD
     Route: 048
     Dates: start: 20090403

REACTIONS (31)
  - Post procedural hypothyroidism [Unknown]
  - Renal stone removal [Unknown]
  - Haemorrhoids [Not Recovered/Not Resolved]
  - Chondroplasty [Unknown]
  - Carpal tunnel decompression [Unknown]
  - Carpal tunnel syndrome [Unknown]
  - Papillary thyroid cancer [Recovering/Resolving]
  - Angina pectoris [Unknown]
  - Syncope [Unknown]
  - Dizziness [Unknown]
  - Pruritus [Unknown]
  - Thyroidectomy [Unknown]
  - Osteoarthritis [Unknown]
  - Papilloma [Unknown]
  - Ligament operation [Unknown]
  - Dysuria [Unknown]
  - Oedema peripheral [Unknown]
  - Constipation [Not Recovered/Not Resolved]
  - Nausea [Unknown]
  - Rotator cuff repair [Unknown]
  - Sleep apnoea syndrome [Unknown]
  - Dyspnoea exertional [Not Recovered/Not Resolved]
  - Thyroid neoplasm [Unknown]
  - Cerumen impaction [Unknown]
  - Diabetic neuropathy [Unknown]
  - Hypoxia [Unknown]
  - Hypertriglyceridaemia [Unknown]
  - Thyroidectomy [Unknown]
  - Lymphadenopathy [Unknown]
  - Renal stone removal [Unknown]
  - Chest pain [Unknown]

NARRATIVE: CASE EVENT DATE: 200903
